FAERS Safety Report 5297801-7 (Version None)
Quarter: 2007Q2

REPORT INFORMATION
  Report Type: 
  Country: None (occurrence: None)
  Receive Date: 20070413
  Receipt Date: 20070413
  Transmission Date: 20071010
  Serious: Yes (Life-Threatening)
  Sender: FDA-Public Use
  Company Number: None

PATIENT
  Sex: Male

DRUGS (8)
  1. HESPAN [Suspect]
     Indication: FLUID REPLACEMENT
     Dosage: 500ML (IV INFUSION)
     Route: 042
     Dates: start: 20070117
  2. CEFAZOLIN [Concomitant]
  3. LOVASTATIN [Concomitant]
  4. AMIODARONE HCL [Concomitant]
  5. FUROSEMIDE [Concomitant]
  6. LOSARTAN POSTASSIUM [Concomitant]
  7. FELODIPINE [Concomitant]
  8. ASPIRIN [Concomitant]

REACTIONS (2)
  - BRADYCARDIA [None]
  - HYPOTENSION [None]
